FAERS Safety Report 4623846-3 (Version None)
Quarter: 2005Q1

REPORT INFORMATION
  Report Type: 
  Country: None (occurrence: None)
  Receive Date: 20050331
  Receipt Date: 20050324
  Transmission Date: 20050727
  Serious: Yes (Hospitalization)
  Sender: FDA-Public Use
  Company Number: 200512421US

PATIENT
  Age: 70 Year
  Sex: Female

DRUGS (9)
  1. AMARYL [Suspect]
     Dosage: DOSE: UNK
  2. GLUCOPHAGE [Suspect]
     Dosage: DOSE: UNK
  3. PRAVACHOL [Concomitant]
     Dosage: DOSE: UNK
  4. SYNTHROID [Concomitant]
     Dosage: DOSE: UNK
  5. PLAVIX [Concomitant]
     Dosage: DOSE: UNK
  6. CARDIZEM - SLOW RELEASE [Concomitant]
     Dosage: DOSE: UNK
  7. ATACAND [Concomitant]
     Dosage: DOSE: UNK
  8. NEURONTIN [Concomitant]
     Dosage: DOSE: UNK
  9. TRICOR [Concomitant]
     Dosage: DOSE: UNK

REACTIONS (1)
  - RENAL DISORDER [None]
